FAERS Safety Report 6112548-2 (Version None)
Quarter: 2009Q1

REPORT INFORMATION
  Report Type: 
  Country: None (occurrence: None)
  Receive Date: 20090312
  Receipt Date: 20090305
  Transmission Date: 20090719
  Serious: Yes (Other)
  Sender: FDA-Public Use
  Company Number: FR-WYE-G03266809

PATIENT
  Age: 43 Year
  Sex: Female

DRUGS (2)
  1. EFFEXOR [Suspect]
     Route: 048
  2. TERALITHE [Concomitant]
     Dosage: UNKNOWN
     Route: 048

REACTIONS (1)
  - MICROCYTIC ANAEMIA [None]
